FAERS Safety Report 11741305 (Version 2)
Quarter: 2016Q1

REPORT INFORMATION
  Report Type: Spontaneous
  Country: CA (occurrence: CA)
  Receive Date: 20151116
  Receipt Date: 20160106
  Transmission Date: 20160525
  Serious: Yes (Hospitalization, Disabling)
  Sender: FDA-Public Use
  Company Number: CA-009507513-1511CAN006083

PATIENT
  Sex: Male

DRUGS (3)
  1. POSANOL [Suspect]
     Active Substance: POSACONAZOLE
     Indication: MYCOSIS FUNGOIDES
     Dosage: 300 MG, QD
     Route: 048
     Dates: start: 201508, end: 2015
  2. POSANOL [Suspect]
     Active Substance: POSACONAZOLE
     Indication: BONE MARROW TRANSPLANT
     Dosage: 300 MG, BID
     Route: 048
     Dates: start: 2015, end: 2015
  3. POSANOL [Suspect]
     Active Substance: POSACONAZOLE
     Indication: ANTIFUNGAL PROPHYLAXIS

REACTIONS (2)
  - Abasia [Unknown]
  - Infection [Unknown]

NARRATIVE: CASE EVENT DATE: 2015
